FAERS Safety Report 4326343-8 (Version None)
Quarter: 2004Q1

REPORT INFORMATION
  Report Type: 
  Country: None (occurrence: None)
  Receive Date: 20040329
  Receipt Date: 20040329
  Transmission Date: 20041129
  Serious: Yes (Other)
  Sender: FDA-Public Use
  Company Number: None

PATIENT
  Sex: Female
  Weight: 95.2554 kg

DRUGS (2)
  1. PAXIL [Suspect]
  2. MECLIZINE [Concomitant]

REACTIONS (5)
  - ABNORMAL DREAMS [None]
  - EAR CONGESTION [None]
  - NAUSEA [None]
  - VERTIGO [None]
  - VOMITING [None]
